FAERS Safety Report 16037714 (Version 2)
Quarter: 2020Q1

REPORT INFORMATION
  Report Type: Spontaneous
  Country: US (occurrence: US)
  Receive Date: 20190305
  Receipt Date: 20200303
  Transmission Date: 20200409
  Serious: No
  Sender: FDA-Public Use
  Company Number: US-IMPAX LABORATORIES, LLC-2018-IPXL-04422

PATIENT
  Sex: Female

DRUGS (1)
  1. RYTARY [Suspect]
     Active Substance: CARBIDOPA\LEVODOPA
     Indication: PARKINSON^S DISEASE
     Dosage: 2 DOSAGE FORM, TID
     Route: 048
     Dates: start: 201810

REACTIONS (5)
  - Sluggishness [Unknown]
  - Mental impairment [Unknown]
  - Feeling abnormal [Unknown]
  - Muscle rigidity [Unknown]
  - Anxiety [Unknown]
